FAERS Safety Report 6617888-6 (Version None)
Quarter: 2010Q1

REPORT INFORMATION
  Report Type: 
  Country: None (occurrence: None)
  Receive Date: 20100308
  Receipt Date: 20100224
  Transmission Date: 20100710
  Serious: Yes (Other)
  Sender: FDA-Public Use
  Company Number: US-ELI_LILLY_AND_COMPANY-US200911005054

PATIENT
  Sex: Female

DRUGS (8)
  1. CYMBALTA [Suspect]
     Indication: ANXIETY
     Dosage: 60 MG, DAILY (1/D)
     Dates: start: 20090401, end: 20091001
  2. CYMBALTA [Suspect]
     Dosage: 90 MG, DAILY (1/D)
     Dates: start: 20091001
  3. CYMBALTA [Suspect]
     Dosage: 30 MG, UNK
     Dates: start: 20091016
  4. CYMBALTA [Suspect]
     Dosage: 90 MG, UNK
  5. ADDERALL 30 [Concomitant]
  6. KLONOPIN [Concomitant]
  7. PLAQUENIL /00072601/ [Concomitant]
  8. ZANAFLEX [Concomitant]

REACTIONS (4)
  - DIZZINESS [None]
  - FALL [None]
  - LOSS OF CONSCIOUSNESS [None]
  - ORTHOSTATIC HYPOTENSION [None]
